FAERS Safety Report 7924699-8 (Version None)
Quarter: 2011Q4

REPORT INFORMATION
  Report Type: 
  Country: None (occurrence: None)
  Receive Date: 20111118
  Receipt Date: 20110325
  Transmission Date: 20120403
  Serious: No
  Sender: FDA-Public Use
  Company Number: US-AMGEN-USASP2011016260

PATIENT
  Age: 40 Year
  Sex: Female

DRUGS (1)
  1. ENBREL [Suspect]
     Indication: RHEUMATOID ARTHRITIS
     Dates: start: 20091204, end: 20110318

REACTIONS (6)
  - FATIGUE [None]
  - PAIN IN EXTREMITY [None]
  - BACTERIAL INFECTION [None]
  - MIDDLE INSOMNIA [None]
  - DYSPNOEA [None]
  - LOCAL SWELLING [None]
